FAERS Safety Report 23080766 (Version 11)
Quarter: 2024Q2

REPORT INFORMATION
  Report Type: Spontaneous
  Country: US (occurrence: US)
  Receive Date: 20231018
  Receipt Date: 20240619
  Transmission Date: 20240716
  Serious: Yes (Disabling, Other)
  Sender: FDA-Public Use
  Company Number: US-ORGANON-O2310USA002174

PATIENT
  Sex: Female

DRUGS (6)
  1. SINGULAIR [Suspect]
     Active Substance: MONTELUKAST SODIUM
     Indication: Asthma
     Dosage: 10 MILLIGRAM
     Route: 048
     Dates: start: 2005, end: 2022
  2. SINGULAIR [Suspect]
     Active Substance: MONTELUKAST SODIUM
     Dosage: 10 MILLIGRAM
     Route: 048
     Dates: start: 2005, end: 2016
  3. SINGULAIR [Suspect]
     Active Substance: MONTELUKAST SODIUM
     Dosage: UNK
     Route: 048
     Dates: start: 2006, end: 2012
  4. SINGULAIR [Suspect]
     Active Substance: MONTELUKAST SODIUM
     Dosage: 10 MILLIGRAM
     Route: 048
     Dates: start: 2017, end: 2019
  5. SINGULAIR [Suspect]
     Active Substance: MONTELUKAST SODIUM
     Dosage: 10 MILLIGRAM, QD, TAKE 1 TABLET BY MOUTH DAILY. , 90 TABLETS
     Route: 048
     Dates: start: 20220513, end: 20230113
  6. TOPAMAX [Concomitant]
     Active Substance: TOPIRAMATE
     Dosage: UNK

REACTIONS (56)
  - Neuropsychological symptoms [Not Recovered/Not Resolved]
  - Anxiety [Not Recovered/Not Resolved]
  - Suicidal ideation [Not Recovered/Not Resolved]
  - Depression [Not Recovered/Not Resolved]
  - Insomnia [Not Recovered/Not Resolved]
  - Memory impairment [Not Recovered/Not Resolved]
  - Hostility [Not Recovered/Not Resolved]
  - Agitation [Not Recovered/Not Resolved]
  - Abnormal dreams [Not Recovered/Not Resolved]
  - Major depression [Not Recovered/Not Resolved]
  - Suicidal ideation [Unknown]
  - Deafness [Unknown]
  - Lipoedema [Unknown]
  - Headache [Unknown]
  - Post-traumatic stress disorder [Not Recovered/Not Resolved]
  - Agoraphobia [Not Recovered/Not Resolved]
  - Asthma [Not Recovered/Not Resolved]
  - Rhinitis allergic [Unknown]
  - Asthma [Not Recovered/Not Resolved]
  - Headache [Unknown]
  - Psychophysiologic insomnia [Unknown]
  - Purging [Not Recovered/Not Resolved]
  - Hyperphagia [Unknown]
  - Stress [Unknown]
  - Self-induced vomiting [Unknown]
  - Conjunctivitis allergic [Unknown]
  - Anxiety [Not Recovered/Not Resolved]
  - Sinusitis [Unknown]
  - Dyspnoea [Unknown]
  - Laboratory test abnormal [Unknown]
  - Fatigue [Unknown]
  - Nervousness [Unknown]
  - Depressed mood [Not Recovered/Not Resolved]
  - Sleep terror [Unknown]
  - Initial insomnia [Unknown]
  - Hypersomnia [Unknown]
  - Dizziness [Unknown]
  - Cough [Unknown]
  - Hyperhidrosis [Unknown]
  - Headache [Not Recovered/Not Resolved]
  - Dry mouth [Unknown]
  - Libido decreased [Unknown]
  - Affective disorder [Not Recovered/Not Resolved]
  - Anxiety [Not Recovered/Not Resolved]
  - Anxiety [Not Recovered/Not Resolved]
  - Feeling of despair [Not Recovered/Not Resolved]
  - Hypersomnia [Unknown]
  - Decreased appetite [Unknown]
  - Screaming [Unknown]
  - Stress [Unknown]
  - Hepatic enzyme increased [Unknown]
  - Apathy [Unknown]
  - Social problem [Unknown]
  - Food intolerance [Unknown]
  - Sinus disorder [Unknown]
  - Tinnitus [Unknown]

NARRATIVE: CASE EVENT DATE: 20060101
